FAERS Safety Report 6129881-0 (Version None)
Quarter: 2009Q1

REPORT INFORMATION
  Report Type: 
  Country: None (occurrence: None)
  Receive Date: 20090324
  Receipt Date: 20090312
  Transmission Date: 20090719
  Serious: Yes (Hospitalization)
  Sender: FDA-Public Use
  Company Number: FR-PFIZER INC-2009183338

PATIENT

DRUGS (14)
  1. DALACINE [Suspect]
     Route: 048
     Dates: start: 20080725, end: 20080802
  2. FONDAPARINUX [Suspect]
     Indication: PROPHYLAXIS
     Dates: start: 20080729, end: 20080802
  3. BENZATHINE PENICILLIN G [Suspect]
     Dates: start: 20080730, end: 20080801
  4. AMOXICILLIN [Suspect]
     Dates: start: 20080803, end: 20080803
  5. GENTAMICIN [Suspect]
     Dates: start: 20080803, end: 20080803
  6. OMEPRAZOLE [Suspect]
     Indication: PROPHYLAXIS
     Dates: start: 20080802, end: 20080802
  7. AMOXICILLIN AND CLAVULANATE POTASSIUM [Suspect]
     Route: 048
     Dates: start: 20080725, end: 20080802
  8. TRAMADOL HYDROCHLORIDE [Suspect]
     Route: 048
     Dates: start: 20080728, end: 20080802
  9. NEFOPAM [Suspect]
     Dates: start: 20080728, end: 20080806
  10. PARACETAMOL [Concomitant]
     Route: 048
     Dates: start: 20080803
  11. PARACETAMOL [Concomitant]
     Dates: start: 20080802, end: 20080803
  12. ENOXAPARIN [Concomitant]
     Dates: start: 20080723, end: 20080728
  13. PANTOPRAZOLE [Concomitant]
     Route: 048
     Dates: start: 20080803
  14. METRONIDAZOLE BENZOATE [Concomitant]
     Route: 048
     Dates: start: 20080803, end: 20080828

REACTIONS (1)
  - ACUTE GENERALISED EXANTHEMATOUS PUSTULOSIS [None]
